FAERS Safety Report 4425094-9 (Version None)
Quarter: 2004Q3

REPORT INFORMATION
  Report Type: 
  Country: None (occurrence: None)
  Receive Date: 20040809
  Receipt Date: 20040723
  Transmission Date: 20050211
  Serious: Yes (Other)
  Sender: FDA-Public Use
  Company Number: 238324

PATIENT
  Age: 21 Year
  Sex: Male

DRUGS (2)
  1. NOVOLIN N [Suspect]
     Indication: DIABETES MELLITUS INSULIN-DEPENDENT
     Dosage: 15 IU, BID, SUBCUTANEOUS
     Route: 058
     Dates: start: 20040401, end: 20040601
  2. NOVOLIN R [Suspect]
     Indication: DIABETES MELLITUS INSULIN-DEPENDENT
     Dosage: 15 IU, BID, SUBCUTANEOUS
     Route: 058
     Dates: start: 20040401, end: 20040601

REACTIONS (2)
  - HYPOGLYCAEMIC SEIZURE [None]
  - JOINT DISLOCATION [None]
